FAERS Safety Report 4871570-4 (Version None)
Quarter: 2005Q4

REPORT INFORMATION
  Report Type: 
  Country: None (occurrence: None)
  Receive Date: 20051230
  Receipt Date: 20040806
  Transmission Date: 20060501
  Serious: Yes (Hospitalization)
  Sender: FDA-Public Use
  Company Number: 184328

PATIENT
  Age: 49 Year
  Sex: Male
  Weight: 81 kg

DRUGS (3)
  1. AVONEX [Suspect]
     Indication: MULTIPLE SCLEROSIS
     Dosage: 30 UG; QW; IM
     Route: 030
     Dates: start: 19980101, end: 20030921
  2. AVONEX [Suspect]
     Indication: MULTIPLE SCLEROSIS
     Dosage: 30 UG; QW; IM
     Route: 030
     Dates: start: 20030928
  3. NEURONTIN [Concomitant]

REACTIONS (5)
  - CHEST PAIN [None]
  - CHILLS [None]
  - FEELING COLD [None]
  - INFLUENZA LIKE ILLNESS [None]
  - MYALGIA [None]
